FAERS Safety Report 12948968 (Version 4)
Quarter: 2018Q1

REPORT INFORMATION
  Report Type: Spontaneous
  Country: US (occurrence: US)
  Receive Date: 20161116
  Receipt Date: 20180112
  Transmission Date: 20180508
  Serious: Yes (Hospitalization, Other)
  Sender: FDA-Public Use
  Company Number: US-009507513-1611USA007208

PATIENT
  Sex: Female
  Weight: 72.56 kg

DRUGS (6)
  1. NUVARING [Suspect]
     Active Substance: ETHINYL ESTRADIOL\ETONOGESTREL
     Indication: PRODUCT USED FOR UNKNOWN INDICATION
     Dosage: INSERT 1 RING VAGINALLY FOR 3 WEEKS
     Route: 067
     Dates: start: 200809, end: 200902
  2. ZYRTEC [Concomitant]
     Active Substance: CETIRIZINE HYDROCHLORIDE
     Indication: PRODUCT USED FOR UNKNOWN INDICATION
     Dosage: 10 MG, QD
     Route: 048
  3. NUVARING [Suspect]
     Active Substance: ETHINYL ESTRADIOL\ETONOGESTREL
     Indication: HORMONE LEVEL ABNORMAL
     Dosage: 1 RING, 3 WEEKS IN PLACE, 1 WEEK RING FREE
     Route: 067
     Dates: start: 201409, end: 20141117
  4. LEXAPRO [Concomitant]
     Active Substance: ESCITALOPRAM OXALATE
     Indication: PRODUCT USED FOR UNKNOWN INDICATION
     Dosage: 10 MG, QD
     Route: 048
  5. HYDROXYZINE [Concomitant]
     Active Substance: HYDROXYZINE HYDROCHLORIDE
     Indication: PRODUCT USED FOR UNKNOWN INDICATION
     Dosage: 25 MG, NIGHTLY, ALSO NOTED AS TWICE A DAY
     Route: 048
  6. SINGULAIR [Concomitant]
     Active Substance: MONTELUKAST SODIUM
     Indication: PRODUCT USED FOR UNKNOWN INDICATION
     Dosage: 10 MG, QD
     Route: 048

REACTIONS (18)
  - Menometrorrhagia [Not Recovered/Not Resolved]
  - Intervertebral disc degeneration [Unknown]
  - Alcohol use [Unknown]
  - Pain [Unknown]
  - Anxiety [Unknown]
  - Back disorder [Unknown]
  - Swelling [Unknown]
  - Migraine [Unknown]
  - Asthma [Unknown]
  - Caffeine consumption [Unknown]
  - Syncope [Recovered/Resolved]
  - Maternal exposure before pregnancy [Recovered/Resolved]
  - Depression [Unknown]
  - Vitamin D deficiency [Unknown]
  - Uterine haemorrhage [Not Recovered/Not Resolved]
  - Pulmonary embolism [Unknown]
  - Off label use [Recovered/Resolved]
  - Heart rate irregular [Unknown]

NARRATIVE: CASE EVENT DATE: 200911
